FAERS Safety Report 21519120 (Version 1)
Quarter: 2022Q4

REPORT INFORMATION
  Report Type: Spontaneous
  Country: US (occurrence: US)
  Receive Date: 20221028
  Receipt Date: 20221028
  Transmission Date: 20230112
  Serious: No
  Sender: FDA-Public Use
  Company Number: US-BAUSCH-BL-2022-024307

PATIENT
  Age: 5 Decade
  Sex: Female

DRUGS (2)
  1. ARESTIN [Suspect]
     Active Substance: MINOCYCLINE HYDROCHLORIDE
     Indication: Gingival recession
     Route: 065
  2. ARESTIN [Suspect]
     Active Substance: MINOCYCLINE HYDROCHLORIDE

REACTIONS (1)
  - Drug ineffective [Unknown]
